FAERS Safety Report 6764893-5 (Version None)
Quarter: 2010Q2

REPORT INFORMATION
  Report Type: 
  Country: None (occurrence: None)
  Receive Date: 20100610
  Receipt Date: 20100601
  Transmission Date: 20101027
  Serious: Yes (Hospitalization)
  Sender: FDA-Public Use
  Company Number: US-ABBOTT-10P-163-0648677-00

PATIENT
  Sex: Female
  Weight: 63.56 kg

DRUGS (8)
  1. DEPAKOTE [Suspect]
     Indication: BIPOLAR DISORDER
     Dates: start: 20000101, end: 20100401
  2. DEPAKOTE [Suspect]
     Indication: EPILEPSY
  3. THORAZINE [Suspect]
     Indication: DRUG USE FOR UNKNOWN INDICATION
  4. VALIUM [Concomitant]
     Indication: INSOMNIA
     Dates: start: 20000101
  5. EFFEXOR [Concomitant]
     Indication: DEPRESSION
  6. DARVOCET [Concomitant]
     Indication: PAIN
     Dates: start: 20100401
  7. DARVON [Concomitant]
     Indication: HYPERTENSION
  8. TRILEPTAL [Concomitant]
     Indication: EPILEPSY

REACTIONS (5)
  - BLOOD THYROID STIMULATING HORMONE DECREASED [None]
  - DEMENTIA [None]
  - FALL [None]
  - FEELING ABNORMAL [None]
  - RENAL DISORDER [None]
